FAERS Safety Report 8934964 (Version 1)
Quarter: 2012Q4

REPORT INFORMATION
  Report Type: 
  Country: DE (occurrence: DE)
  Receive Date: 20121129
  Receipt Date: 20121129
  Transmission Date: 20130627
  Serious: Yes (Other)
  Sender: FDA-Public Use
  Company Number: DE-ALLERGAN-1216094US

PATIENT
  Age: 38 Year
  Sex: Male

DRUGS (1)
  1. GANFORT [Suspect]
     Indication: OPEN ANGLE GLAUCOMA
     Dosage: UNK
     Dates: start: 2011, end: 2011

REACTIONS (2)
  - Schizophrenia [Recovered/Resolved]
  - Nightmare [Recovered/Resolved]
